FAERS Safety Report 10188569 (Version 1)
Quarter: 2014Q2

REPORT INFORMATION
  Report Type: Spontaneous
  Country: CN (occurrence: None)
  Receive Date: 20140520
  Receipt Date: 20140520
  Transmission Date: 20141212
  Serious: Yes (Life-Threatening)
  Sender: FDA-Public Use
  Company Number: 2014P1004015

PATIENT
  Sex: 0

DRUGS (1)
  1. OXYTOCIN [Suspect]
     Indication: INDUCTION OF CERVIX RIPENING
     Route: 042

REACTIONS (2)
  - Foetal exposure during pregnancy [None]
  - Neonatal asphyxia [None]
